FAERS Safety Report 7152173-8 (Version None)
Quarter: 2010Q4

REPORT INFORMATION
  Report Type: 
  Country: None (occurrence: None)
  Receive Date: 20101213
  Receipt Date: 20101203
  Transmission Date: 20110411
  Serious: No
  Sender: FDA-Public Use
  Company Number: US-BIOGENIDEC-2010BI042951

PATIENT
  Age: 54 Year
  Sex: Female

DRUGS (3)
  1. AVONEX [Suspect]
     Indication: MULTIPLE SCLEROSIS
     Route: 030
     Dates: start: 20080108, end: 20101122
  2. FIORINAL [Concomitant]
     Indication: MIGRAINE
  3. ADVIL [Concomitant]
     Indication: MIGRAINE

REACTIONS (6)
  - ANGER [None]
  - DEPRESSION [None]
  - GAIT DISTURBANCE [None]
  - HEADACHE [None]
  - SUICIDAL IDEATION [None]
  - URINARY INCONTINENCE [None]
